FAERS Safety Report 8284175-2 (Version None)
Quarter: 2012Q2

REPORT INFORMATION
  Report Type: 
  Country: None (occurrence: None)
  Receive Date: 20120413
  Receipt Date: 20110830
  Transmission Date: 20120825
  Serious: No
  Sender: FDA-Public Use
  Company Number: US-ASTRAZENECA-2010SE47317

PATIENT
  Age: 51 Year
  Sex: Male

DRUGS (3)
  1. NEXIUM [Suspect]
     Route: 048
  2. MORPHINE [Concomitant]
  3. LEXAPRO [Concomitant]

REACTIONS (3)
  - MALAISE [None]
  - DRUG DOSE OMISSION [None]
  - CHEST PAIN [None]
